FAERS Safety Report 15916157 (Version 1)
Quarter: 2019Q1

REPORT INFORMATION
  Report Type: Spontaneous
  Country: JP (occurrence: JP)
  Receive Date: 20190204
  Receipt Date: 20190204
  Transmission Date: 20190417
  Serious: Yes (Hospitalization)
  Sender: FDA-Public Use
  Company Number: PHHY2019JP023396

PATIENT
  Age: 44 Year
  Sex: Male

DRUGS (4)
  1. CLONAZEPAM. [Suspect]
     Active Substance: CLONAZEPAM
     Indication: NEUROLEPTIC MALIGNANT SYNDROME
     Route: 065
  2. DANTROLENE. [Concomitant]
     Active Substance: DANTROLENE SODIUM
     Indication: HYPERTHERMIA
     Route: 042
  3. BROMOCRIPTINE [Suspect]
     Active Substance: BROMOCRIPTINE
     Indication: NEUROLEPTIC MALIGNANT SYNDROME
     Dosage: UNK
     Route: 065
  4. BIPERIDEN [Concomitant]
     Active Substance: BIPERIDEN
     Indication: PARKINSON^S DISEASE
     Route: 065

REACTIONS (7)
  - Dyskinesia [Recovered/Resolved]
  - Aggression [Recovered/Resolved]
  - Screaming [Recovered/Resolved]
  - Nightmare [Recovered/Resolved]
  - Middle insomnia [Recovered/Resolved]
  - Product use in unapproved indication [Unknown]
  - Rapid eye movement sleep behaviour disorder [Recovered/Resolved]
